FAERS Safety Report 24242415 (Version 1)
Quarter: 2024Q3

REPORT INFORMATION
  Report Type: Spontaneous
  Country: ES (occurrence: ES)
  Receive Date: 20240823
  Receipt Date: 20240823
  Transmission Date: 20241017
  Serious: Yes (Other)
  Sender: Teyro Labs
  Company Number: ES-TEYRO-2024-TY-000493

PATIENT
  Sex: Male

DRUGS (6)
  1. CARBOPLATIN [Suspect]
     Active Substance: CARBOPLATIN
     Indication: Neuroendocrine carcinoma
     Dosage: UNK
     Route: 065
  2. CARBOPLATIN [Suspect]
     Active Substance: CARBOPLATIN
     Indication: Neuroendocrine carcinoma
  3. NIVOLUMAB [Suspect]
     Active Substance: NIVOLUMAB
     Indication: Neuroendocrine carcinoma
     Dosage: UNK
     Route: 065
  4. NIVOLUMAB [Suspect]
     Active Substance: NIVOLUMAB
     Indication: Neuroendocrine carcinoma
  5. ETOPOSIDE [Suspect]
     Active Substance: ETOPOSIDE
     Indication: Neuroendocrine carcinoma
     Dosage: UNK
     Route: 065
  6. ETOPOSIDE [Suspect]
     Active Substance: ETOPOSIDE
     Indication: Neuroendocrine carcinoma

REACTIONS (7)
  - Hip fracture [Unknown]
  - Abdominal pain [Unknown]
  - Musculoskeletal chest pain [Unknown]
  - Bone pain [Unknown]
  - Musculoskeletal pain [Unknown]
  - Tendon pain [Unknown]
  - Off label use [Unknown]
